FAERS Safety Report 8336978-3 (Version None)
Quarter: 2012Q2

REPORT INFORMATION
  Report Type: 
  Country: None (occurrence: None)
  Receive Date: 20120504
  Receipt Date: 20120425
  Transmission Date: 20120825
  Serious: Yes (Hospitalization, Other)
  Sender: FDA-Public Use
  Company Number: PHHY2011FR95468

PATIENT
  Sex: Female

DRUGS (10)
  1. ZOLPIDEM TARTRATE [Concomitant]
  2. ATENOLOL [Suspect]
     Dosage: 50 MG, UNK
     Dates: end: 20110901
  3. LISINOPRIL [Suspect]
     Dosage: 1 DF, QD
     Route: 048
  4. HALDOL [Suspect]
     Dosage: 1 DF (1DF - 0.5DF - 1DF)
  5. LORAZEPAM [Suspect]
     Dosage: 1 DF, BID
     Route: 048
  6. DEPAKENE [Suspect]
     Dosage: 1 DF, BID
     Route: 048
  7. ESIDRIX [Suspect]
     Dosage: 12.5 MG, PER DAY
     Route: 048
  8. NEXIUM [Suspect]
     Dosage: 20 MG, QD
     Route: 048
  9. XANAX [Suspect]
     Dosage: 0.50 MG, QD
     Route: 048
  10. LEPTICUR [Suspect]
     Dosage: 1 DF, BID
     Route: 048

REACTIONS (10)
  - ECCHYMOSIS [None]
  - BLOOD PRESSURE DECREASED [None]
  - HYPOTHERMIA [None]
  - BRADYCARDIA [None]
  - ESCHERICHIA TEST POSITIVE [None]
  - BUNDLE BRANCH BLOCK LEFT [None]
  - CEREBRAL ATROPHY [None]
  - NEUROLOGICAL EXAMINATION ABNORMAL [None]
  - FALL [None]
  - ATRIOVENTRICULAR BLOCK [None]
